FAERS Safety Report 4851760-7 (Version None)
Quarter: 2005Q4

REPORT INFORMATION
  Report Type: 
  Country: None (occurrence: None)
  Receive Date: 20051209
  Receipt Date: 20051124
  Transmission Date: 20060501
  Serious: Yes (Other)
  Sender: FDA-Public Use
  Company Number: S05-CAN-05618-01

PATIENT
  Age: 39 Year
  Sex: Female

DRUGS (1)
  1. CELEXA [Suspect]
     Dosage: 10 MG QD; PO
     Route: 048

REACTIONS (5)
  - ALANINE AMINOTRANSFERASE INCREASED [None]
  - ASPARTATE AMINOTRANSFERASE INCREASED [None]
  - CHOLESTASIS [None]
  - LIVER DISORDER [None]
  - RENAL TUBULAR NECROSIS [None]
